FAERS Safety Report 14447750 (Version 1)
Quarter: 2018Q1

REPORT INFORMATION
  Report Type: Spontaneous
  Country: US (occurrence: US)
  Receive Date: 20180126
  Receipt Date: 20180126
  Transmission Date: 20180509
  Serious: No
  Sender: FDA-Public Use
  Company Number: US-ABBVIE-17K-163-2128531-00

PATIENT
  Age: 58 Year
  Sex: Female

DRUGS (3)
  1. BETAMETHASONE. [Suspect]
     Active Substance: BETAMETHASONE
     Indication: LICHEN SCLEROSUS
     Route: 067
     Dates: start: 2015
  2. HUMIRA [Suspect]
     Active Substance: ADALIMUMAB
     Route: 058
     Dates: start: 20170927
  3. HUMIRA [Suspect]
     Active Substance: ADALIMUMAB
     Indication: GRANULOMA ANNULARE
     Dosage: LOADING DOSE
     Route: 058
     Dates: start: 20170913, end: 20170913

REACTIONS (4)
  - Vulvovaginal pain [Not Recovered/Not Resolved]
  - Pruritus [Not Recovered/Not Resolved]
  - Vaginal discharge [Not Recovered/Not Resolved]
  - Burning sensation [Not Recovered/Not Resolved]

NARRATIVE: CASE EVENT DATE: 201710
